FAERS Safety Report 6431060-4 (Version None)
Quarter: 2009Q4

REPORT INFORMATION
  Report Type: 
  Country: None (occurrence: None)
  Receive Date: 20091106
  Receipt Date: 20091029
  Transmission Date: 20100525
  Serious: No
  Sender: FDA-Public Use
  Company Number: B0599946A

PATIENT
  Age: 16 Year
  Sex: Female

DRUGS (3)
  1. RELENZA [Suspect]
     Indication: INFLUENZA
     Dosage: 20MG PER DAY
     Route: 055
     Dates: start: 20091020, end: 20091020
  2. RELENZA [Suspect]
     Route: 055
     Dates: start: 20091021, end: 20091021
  3. RELENZA [Suspect]
     Dosage: 10MG TWICE PER DAY
     Route: 055
     Dates: start: 20091022, end: 20091024

REACTIONS (1)
  - OVERDOSE [None]
